FAERS Safety Report 4277234-2 (Version None)
Quarter: 2004Q1

REPORT INFORMATION
  Report Type: 
  Country: None (occurrence: None)
  Receive Date: 20040120
  Receipt Date: 20040109
  Transmission Date: 20041129
  Serious: Yes (Life-Threatening, Hospitalization)
  Sender: FDA-Public Use
  Company Number: 2004PK00038

PATIENT
  Age: 58 Year
  Sex: Male

DRUGS (5)
  1. ENTOCORT EC [Suspect]
     Indication: CROHN'S DISEASE
     Dosage: 3 MG DAILY PO
     Route: 048
     Dates: start: 20030615, end: 20031218
  2. AZATHIOPRINE SODIUM [Suspect]
     Indication: CROHN'S DISEASE
     Dosage: 150 MG DAILY PO
     Route: 048
     Dates: start: 20030615, end: 20031218
  3. LOSARTAN POTASSIUM W/HYDROCHLOROTHIAZIDE [Concomitant]
  4. NORVASC [Concomitant]
  5. ZOCOR [Concomitant]

REACTIONS (7)
  - ALCOHOLISM [None]
  - BONE MARROW TOXICITY [None]
  - LUNG INFILTRATION [None]
  - MYOCARDIAL INFARCTION [None]
  - PANCYTOPENIA [None]
  - SEPSIS [None]
  - SERUM FERRITIN INCREASED [None]
